FAERS Safety Report 16460326 (Version 1)
Quarter: 2019Q2

REPORT INFORMATION
  Report Type: Spontaneous
  Country: GB (occurrence: GB)
  Receive Date: 20190620
  Receipt Date: 20190620
  Transmission Date: 20190711
  Serious: Yes (Life-Threatening, Hospitalization, Other)
  Sender: FDA-Public Use
  Company Number: GB-MYLANLABS-2019M1058120

PATIENT
  Age: 17 Year
  Sex: Male

DRUGS (1)
  1. VERAPAMIL [Suspect]
     Active Substance: VERAPAMIL HYDROCHLORIDE
     Indication: PRODUCT USED FOR UNKNOWN INDICATION
     Dosage: PATIENT^S PARENTS FOUND EMPTY PACKETS OF AROUND 10 G SUSTAINED RELEASE VERAPAMIL AT HOME.
     Route: 065

REACTIONS (14)
  - Somnolence [Recovering/Resolving]
  - Bundle branch block left [Recovering/Resolving]
  - Cardiac arrest [Recovering/Resolving]
  - Electrocardiogram QRS complex prolonged [Recovering/Resolving]
  - Acute kidney injury [Recovering/Resolving]
  - Generalised tonic-clonic seizure [Recovering/Resolving]
  - Atrial fibrillation [Recovering/Resolving]
  - Haemodynamic instability [Recovering/Resolving]
  - Intentional overdose [Recovering/Resolving]
  - Hypotension [Recovering/Resolving]
  - Bradycardia [Recovering/Resolving]
  - Metabolic acidosis [Recovering/Resolving]
  - Confusional state [Recovering/Resolving]
  - Hypoxia [Recovering/Resolving]
